FAERS Safety Report 5831851-4 (Version None)
Quarter: 2008Q3

REPORT INFORMATION
  Report Type: 
  Country: None (occurrence: None)
  Receive Date: 20080804
  Receipt Date: 20080731
  Transmission Date: 20090109
  Serious: Yes (Life-Threatening, Hospitalization)
  Sender: FDA-Public Use
  Company Number: FR-BRISTOL-MYERS SQUIBB COMPANY-14226138

PATIENT
  Age: 64 Year
  Sex: Female

DRUGS (2)
  1. TAXOL [Suspect]
     Indication: NEOPLASM MALIGNANT
     Dosage: STARTED ON 28-OCT-2005 WITH TAXOL 280MG AND GEMZAR 2G THE FIRST DAY AND GEMZAR 2G ON 8TH DAY.
     Route: 042
     Dates: start: 20060601, end: 20060601
  2. GEMZAR [Suspect]
     Indication: NEOPLASM MALIGNANT
     Dosage: STARTED ON 28-OCT-2005 WITH TAXOL 280MG AND GEMZAR 2G THE FIRST DAY AND GEMZAR 2G ON 8TH DAY.
     Dates: start: 20060601, end: 20060601

REACTIONS (8)
  - BLOOD CREATINE [None]
  - BLOOD PRESSURE INCREASED [None]
  - CARDIAC FAILURE [None]
  - DYSPNOEA [None]
  - GENERALISED OEDEMA [None]
  - OLIGURIA [None]
  - PERICARDIAL EFFUSION [None]
  - PLEURAL EFFUSION [None]
